FAERS Safety Report 8297488-5 (Version None)
Quarter: 2012Q2

REPORT INFORMATION
  Report Type: 
  Country: None (occurrence: None)
  Receive Date: 20120419
  Receipt Date: 20120411
  Transmission Date: 20120825
  Serious: Yes (Death, Other)
  Sender: FDA-Public Use
  Company Number: PHHY2012LB031927

PATIENT
  Age: 62 Year
  Sex: Female

DRUGS (4)
  1. SANDOSTATIN LAR [Suspect]
     Indication: VIPOMA
  2. DOCETAXEL [Concomitant]
  3. ZOLEDRONIC ACID [Suspect]
  4. FLUOROURACIL [Concomitant]

REACTIONS (5)
  - LYMPHADENOPATHY [None]
  - HEPATIC FAILURE [None]
  - JUGULAR VEIN THROMBOSIS [None]
  - DIARRHOEA [None]
  - NEOPLASM MALIGNANT [None]
